FAERS Safety Report 20628987 (Version 1)
Quarter: 2022Q1

REPORT INFORMATION
  Report Type: Spontaneous
  Country: CN (occurrence: CN)
  Receive Date: 20220323
  Receipt Date: 20220323
  Transmission Date: 20220424
  Serious: Yes (Other)
  Sender: FDA-Public Use
  Company Number: CN-BAXTER-2022BAX006167

PATIENT
  Age: 64 Year
  Sex: Female
  Weight: 67.5 kg

DRUGS (6)
  1. CYCLOPHOSPHAMIDE [Suspect]
     Active Substance: CYCLOPHOSPHAMIDE
     Indication: Breast cancer female
     Dosage: 1ST CHEMOTHERAPY: CYCLOPHOSPHAMIDE (800 MG) + NS (40 ML)
     Route: 042
     Dates: start: 20220118, end: 20220118
  2. SODIUM CHLORIDE [Suspect]
     Active Substance: SODIUM CHLORIDE
     Indication: Medication dilution
     Dosage: 1ST CHEMOTHERAPY: CYCLOPHOSPHAMIDE (800 MG) + NS (40 ML)
     Route: 042
     Dates: start: 20220118, end: 20220118
  3. SODIUM CHLORIDE [Suspect]
     Active Substance: SODIUM CHLORIDE
     Dosage: 1ST CHEMOTHERAPY: EPIRUBICIN HYDROCHLORIDE (130 MG) + NS (100 ML)
     Route: 041
     Dates: start: 20220118, end: 20220118
  4. SODIUM CHLORIDE [Suspect]
     Active Substance: SODIUM CHLORIDE
     Dosage: 1ST CHEMOTHERAPY: FLUOROURACIL (800 MG) + NS (500 ML)
     Route: 041
     Dates: start: 20220118, end: 20220118
  5. EPIRUBICIN [Suspect]
     Active Substance: EPIRUBICIN
     Indication: Breast cancer female
     Dosage: 1ST CHEMOTHERAPY: EPIRUBICIN HYDROCHLORIDE (130 MG) + NS (100 ML)
     Route: 041
     Dates: start: 20220118, end: 20220118
  6. FLUOROURACIL [Suspect]
     Active Substance: FLUOROURACIL
     Indication: Breast cancer female
     Dosage: 1ST CHEMOTHERAPY: FLUOROURACIL (800 MG) + NS (500 ML)
     Route: 041
     Dates: start: 20220118, end: 20220118

REACTIONS (2)
  - White blood cell count decreased [Recovered/Resolved]
  - Agranulocytosis [Recovered/Resolved]

NARRATIVE: CASE EVENT DATE: 20220128
